FAERS Safety Report 6052823-3 (Version None)
Quarter: 2009Q1

REPORT INFORMATION
  Report Type: 
  Country: None (occurrence: None)
  Receive Date: 20090122
  Receipt Date: 20090108
  Transmission Date: 20090719
  Serious: Yes (Hospitalization)
  Sender: FDA-Public Use
  Company Number: KV200900050

PATIENT
  Age: 87 Year
  Sex: Female
  Weight: 52.2 kg

DRUGS (1)
  1. ISOSORBIDE MONONITRATE [Suspect]
     Indication: CARDIAC DISORDER
     Dosage: 30 MG,QD,ORAL
     Route: 048
     Dates: start: 20080101, end: 20081001

REACTIONS (7)
  - DIZZINESS [None]
  - FALL [None]
  - HEAD INJURY [None]
  - JOINT INJURY [None]
  - LIMB DISCOMFORT [None]
  - LIMB INJURY [None]
  - PNEUMONIA [None]
